FAERS Safety Report 23506955 (Version 3)
Quarter: 2024Q2

REPORT INFORMATION
  Report Type: Report from Study
  Country: NL (occurrence: NL)
  Receive Date: 20240209
  Receipt Date: 20240405
  Transmission Date: 20240715
  Serious: Yes (Death)
  Sender: FDA-Public Use
  Company Number: NL-ABBVIE-5629636

PATIENT
  Age: 75 Year
  Sex: Female

DRUGS (18)
  1. CARBIDOPA\LEVODOPA [Suspect]
     Active Substance: CARBIDOPA\LEVODOPA
     Indication: Parkinson^s disease
     Dosage: ND 4.5 ML; CND 4.7 ML/H; END 1.5 ML
     Route: 050
     Dates: start: 20231003, end: 20240109
  2. CARBIDOPA\LEVODOPA [Suspect]
     Active Substance: CARBIDOPA\LEVODOPA
     Dosage: ND 4.5 ML; CND 4.7 ML/H; END 1.5 ML?REMAINED AT 24 HOURS
     Route: 050
     Dates: start: 20231003, end: 20240109
  3. CARBIDOPA\LEVODOPA [Suspect]
     Active Substance: CARBIDOPA\LEVODOPA
     Dosage: MD 5.6 ML; CD 5.3 ML/H; ED 1.5 ML, REMAINED AT 24 HOURS
     Route: 050
     Dates: start: 20240111, end: 20240123
  4. CARBIDOPA\LEVODOPA [Suspect]
     Active Substance: CARBIDOPA\LEVODOPA
     Dosage: MD 5.6 ML; CD 5.4 ML/H; ED 1.5 ML, REMAINED AT 24 HOURS?DISCONTINUED IN 2024
     Route: 050
     Dates: start: 20240123
  5. CARBIDOPA\LEVODOPA [Suspect]
     Active Substance: CARBIDOPA\LEVODOPA
     Dosage: REMAINED AT 16 HOURS
     Route: 050
     Dates: start: 20200127
  6. CARBIDOPA\LEVODOPA [Suspect]
     Active Substance: CARBIDOPA\LEVODOPA
     Dosage: CND 4.8 ML/H, REMAINED AT 24 HOURS
     Route: 050
     Dates: start: 20240109, end: 20240111
  7. PANTOPRAZOLE [Concomitant]
     Active Substance: PANTOPRAZOLE
     Indication: Gastrointestinal disorder prophylaxis
     Route: 048
     Dates: start: 201801
  8. LACTULOSE [Concomitant]
     Active Substance: LACTULOSE
     Indication: Bowel movement irregularity
  9. SIMVASTATIN [Concomitant]
     Active Substance: SIMVASTATIN
     Indication: Blood cholesterol
     Route: 048
     Dates: start: 201801
  10. LERCANIDIPINE [Concomitant]
     Active Substance: LERCANIDIPINE
     Indication: Blood pressure management
     Route: 048
     Dates: start: 199001
  11. XARELTO [Concomitant]
     Active Substance: RIVAROXABAN
     Indication: Anticoagulant therapy
     Route: 048
     Dates: start: 200001
  12. PERINDOPRIL [Concomitant]
     Active Substance: PERINDOPRIL
     Indication: Blood pressure management
     Route: 048
     Dates: start: 200001
  13. LEVOTHYROXINE [Concomitant]
     Active Substance: LEVOTHYROXINE\LEVOTHYROXINE SODIUM
     Indication: Thyroid disorder
     Route: 048
     Dates: start: 199001
  14. ROPINIROLE [Concomitant]
     Active Substance: ROPINIROLE
     Indication: Parkinson^s disease
     Route: 048
     Dates: start: 201201
  15. Levodopa capsules [Concomitant]
     Indication: Parkinson^s disease
     Dosage: 100/25
     Route: 048
     Dates: start: 201101, end: 20200127
  16. Levodopa capsules [Concomitant]
     Indication: Parkinson^s disease
     Dosage: 100/25
     Route: 048
     Dates: start: 20200127
  17. FUROSEMIDE [Concomitant]
     Active Substance: FUROSEMIDE
     Indication: Micturition disorder
     Route: 048
     Dates: start: 200001
  18. Metformin hydrochloride and gliclazide [Concomitant]
     Indication: Diabetes mellitus
     Route: 048
     Dates: start: 199001

REACTIONS (2)
  - Euthanasia [Fatal]
  - Parkinson^s disease [Fatal]

NARRATIVE: CASE EVENT DATE: 20240205
